FAERS Safety Report 7982416-X (Version None)
Quarter: 2011Q4

REPORT INFORMATION
  Report Type: 
  Country: None (occurrence: None)
  Receive Date: 20111215
  Receipt Date: 20111207
  Transmission Date: 20120403
  Serious: Yes (Other)
  Sender: FDA-Public Use
  Company Number: PHHY2010JP50030

PATIENT
  Sex: Female
  Weight: 42 kg

DRUGS (4)
  1. PRIMOBOLAN-DEPOT INJ [Suspect]
     Indication: MYELODYSPLASTIC SYNDROME
     Dosage: 15 MG, UNK
     Route: 048
     Dates: start: 20090527
  2. GLAKAY [Concomitant]
     Indication: MYELODYSPLASTIC SYNDROME
     Dosage: 45 MG, UNK
     Route: 048
     Dates: start: 20090527
  3. GLYBURIDE [Concomitant]
     Dosage: 1.25 MG, UNK
     Route: 048
     Dates: start: 20090527
  4. EXJADE [Suspect]
     Indication: MYELODYSPLASTIC SYNDROME
     Dosage: 750 MG, DAILY
     Route: 048
     Dates: start: 20090527

REACTIONS (8)
  - PLATELET COUNT DECREASED [None]
  - BLOOD CREATININE INCREASED [None]
  - MYELODYSPLASTIC SYNDROME TRANSFORMATION [None]
  - HEPATIC FUNCTION ABNORMAL [None]
  - WHITE BLOOD CELL COUNT DECREASED [None]
  - DIABETIC NEPHROPATHY [None]
  - BLOOD ALKALINE PHOSPHATASE INCREASED [None]
  - BLOOD LACTATE DEHYDROGENASE INCREASED [None]
